FAERS Safety Report 20403425 (Version 1)
Quarter: 2022Q1

REPORT INFORMATION
  Report Type: Report from Study
  Country: AE (occurrence: AE)
  Receive Date: 20220131
  Receipt Date: 20220131
  Transmission Date: 20220423
  Serious: Yes (Life-Threatening, Other)
  Sender: FDA-Public Use
  Company Number: AE-JNJFOC-20220145203

PATIENT

DRUGS (9)
  1. HALOPERIDOL [Interacting]
     Active Substance: HALOPERIDOL
     Indication: Mental disorder
     Route: 065
  2. INVEGA [Interacting]
     Active Substance: PALIPERIDONE
     Indication: Mental disorder
     Route: 065
  3. RISPERDAL [Interacting]
     Active Substance: RISPERIDONE
     Indication: Mental disorder
     Route: 065
  4. OLANZAPINE [Interacting]
     Active Substance: OLANZAPINE
     Indication: Mental disorder
     Route: 065
  5. QUETIAPINE [Interacting]
     Active Substance: QUETIAPINE
     Indication: Mental disorder
     Route: 065
  6. CLONAZEPAM [Interacting]
     Active Substance: CLONAZEPAM
     Indication: Mental disorder
     Route: 065
  7. FLUOXETINE [Interacting]
     Active Substance: FLUOXETINE HYDROCHLORIDE
     Indication: Mental disorder
     Route: 065
  8. CHLORPROMAZINE [Interacting]
     Active Substance: CHLORPROMAZINE
     Indication: Mental disorder
     Route: 065
  9. CARBAMAZEPINE [Interacting]
     Active Substance: CARBAMAZEPINE
     Indication: Mental disorder
     Route: 065

REACTIONS (10)
  - Neuroleptic malignant syndrome [Unknown]
  - Electrocardiogram QT prolonged [Unknown]
  - Drug interaction [Unknown]
  - Ventricular arrhythmia [Unknown]
  - Weight increased [Unknown]
  - Glucose tolerance impaired [Unknown]
  - Somnolence [Unknown]
  - Extrapyramidal disorder [Unknown]
  - Tremor [Unknown]
  - Orthostatic hypotension [Unknown]
